FAERS Safety Report 8900863 (Version 1)
Quarter: 2012Q4

REPORT INFORMATION
  Report Type: 
  Country: US (occurrence: US)
  Receive Date: 20121109
  Receipt Date: 20121109
  Transmission Date: 20130627
  Serious: Yes (Hospitalization)
  Sender: FDA-Public Use
  Company Number: US-ROCHE-1149874

PATIENT
  Age: 58 Year
  Sex: Female

DRUGS (7)
  1. XOLAIR [Suspect]
     Indication: PRODUCT USED FOR UNKNOWN INDICATION
     Route: 065
     Dates: start: 201204, end: 20120927
  2. PREDNISONE [Concomitant]
     Route: 065
  3. SINGULAIR [Concomitant]
  4. DULERA [Concomitant]
  5. FLONASE [Concomitant]
  6. ALLEGRA [Concomitant]
  7. ALBUTEROL [Concomitant]

REACTIONS (6)
  - Influenza [Unknown]
  - Ear infection [Unknown]
  - Ear pain [Unknown]
  - Asthma [Unknown]
  - Heart rate increased [Unknown]
  - Deafness unilateral [Unknown]
